FAERS Safety Report 21664979 (Version 4)
Quarter: 2023Q2

REPORT INFORMATION
  Report Type: Spontaneous
  Country: JP (occurrence: JP)
  Receive Date: 20221130
  Receipt Date: 20230413
  Transmission Date: 20230722
  Serious: Yes (Death, Hospitalization, Disabling)
  Sender: FDA-Public Use
  Company Number: JP-BAYER-2022A163148

PATIENT
  Age: 78 Year
  Sex: Male
  Weight: 70 kg

DRUGS (7)
  1. XARELTO [Suspect]
     Active Substance: RIVAROXABAN
     Indication: Atrial fibrillation
     Dosage: DAILY DOSE 15MG
     Route: 048
     Dates: start: 20150703
  2. ATORVASTATIN CALCIUM [Concomitant]
     Active Substance: ATORVASTATIN CALCIUM
     Dosage: DAILY DOSE 20 MG
     Route: 048
     Dates: start: 20071220
  3. VALSARTAN [Concomitant]
     Active Substance: VALSARTAN
     Dosage: DAILY DOSE 40MG
     Route: 048
     Dates: start: 20071220
  4. GLYBURIDE [Concomitant]
     Active Substance: GLYBURIDE
     Dosage: DAILY DOSE 2.5MG
     Route: 048
     Dates: start: 20071220
  5. HARNAL [Concomitant]
     Active Substance: TAMSULOSIN HYDROCHLORIDE
     Dosage: DAILY DOSE 0.2MG
     Route: 048
     Dates: start: 20071220
  6. GABAPENTIN [Concomitant]
     Active Substance: GABAPENTIN
     Dosage: DAILY DOSE 2400MG
     Route: 048
     Dates: start: 20071220
  7. SIMVASTATIN [Concomitant]
     Active Substance: SIMVASTATIN
     Dosage: DAILY DOSE 1MG
     Route: 048
     Dates: start: 20071220

REACTIONS (2)
  - Death [Fatal]
  - Cerebral haemorrhage [Recovered/Resolved with Sequelae]

NARRATIVE: CASE EVENT DATE: 20170207
